FAERS Safety Report 5081470-5 (Version None)
Quarter: 2006Q3

REPORT INFORMATION
  Report Type: 
  Country: None (occurrence: None)
  Receive Date: 20060810
  Receipt Date: 20060811
  Transmission Date: 20061208
  Serious: Yes (Hospitalization)
  Sender: FDA-Public Use
  Company Number: 2006ADE/DICLO-016

PATIENT
  Age: 10 Year
  Sex: Male

DRUGS (2)
  1. DICLOFENAC [Suspect]
     Indication: BACK PAIN
     Dosage: 12.5MG, 1 DAY,
  2. MEFENAMIC ACID [Suspect]
     Indication: BACK PAIN
     Dosage: 2.260MG, 1DAY,

REACTIONS (9)
  - CONVULSION [None]
  - HEADACHE [None]
  - MENTAL STATUS CHANGES [None]
  - OEDEMA [None]
  - OLIGURIA [None]
  - RENAL HYPERTENSION [None]
  - REVERSIBLE POSTERIOR LEUKOENCEPHALOPATHY SYNDROME [None]
  - TUBULOINTERSTITIAL NEPHRITIS [None]
  - VISUAL DISTURBANCE [None]
